FAERS Safety Report 20009153 (Version 2)
Quarter: 2021Q4

REPORT INFORMATION
  Report Type: Spontaneous
  Country: US (occurrence: US)
  Receive Date: 20211028
  Receipt Date: 20211102
  Transmission Date: 20220303
  Serious: Yes (Hospitalization)
  Sender: FDA-Public Use
  Company Number: US-TEVA-2021-US-1968777

PATIENT
  Age: 62 Year
  Sex: Male

DRUGS (13)
  1. DEXAMETHASONE [Suspect]
     Active Substance: DEXAMETHASONE
     Indication: Plasma cell leukaemia
     Dosage: AS PART OF RVD-PACE, KVD AND KPD REGIMEN
     Route: 065
  2. POMALIDOMIDE [Suspect]
     Active Substance: POMALIDOMIDE
     Indication: Plasma cell leukaemia
     Dosage: AS PART OF KPD REGIMEN
     Route: 065
  3. CARFILZOMIB [Suspect]
     Active Substance: CARFILZOMIB
     Indication: Plasma cell leukaemia
     Dosage: AS PART OF KPD REGIMEN
     Route: 065
  4. CARFILZOMIB [Suspect]
     Active Substance: CARFILZOMIB
     Dosage: AS PART OF KPD REGIMEN
     Route: 065
  5. LENALIDOMIDE [Concomitant]
     Active Substance: LENALIDOMIDE
     Indication: Plasma cell leukaemia
     Dosage: AS PART OF RVD-PACE REGIMEN
     Route: 065
  6. BORTEZOMIB [Concomitant]
     Active Substance: BORTEZOMIB
     Indication: Plasma cell leukaemia
     Dosage: AS PART OF RVD-PACE REGIMEN
     Route: 065
  7. CISPLATIN [Concomitant]
     Active Substance: CISPLATIN
     Indication: Plasma cell leukaemia
     Dosage: AS PART OF RVD-PACE REGIMEN
     Route: 065
  8. DOXORUBICIN [Concomitant]
     Active Substance: DOXORUBICIN
     Indication: Plasma cell leukaemia
     Dosage: AS PART OF RVD-PACE REGIMEN
     Route: 065
  9. CYCLOPHOSPHAMIDE [Concomitant]
     Active Substance: CYCLOPHOSPHAMIDE
     Indication: Plasma cell leukaemia
     Dosage: AS PART OF RVD-PACE REGIMEN
     Route: 065
  10. ETOPOSIDE [Concomitant]
     Active Substance: ETOPOSIDE
     Indication: Plasma cell leukaemia
     Dosage: AS PART OF RVD-PACE REGIMEN
     Route: 065
  11. ZOLEDRONIC ACID [Concomitant]
     Active Substance: ZOLEDRONIC ACID
     Indication: Bone disorder
     Route: 065
  12. ZOLEDRONIC ACID [Concomitant]
     Active Substance: ZOLEDRONIC ACID
     Indication: Prophylaxis
  13. MEL200 [Concomitant]
     Indication: Bone marrow conditioning regimen
     Route: 065

REACTIONS (5)
  - Thrombocytopenia [Unknown]
  - Pneumonia [Unknown]
  - Acute respiratory failure [Unknown]
  - Cytopenia [Unknown]
  - Fatigue [Unknown]
